FAERS Safety Report 7097893-9 (Version None)
Quarter: 2010Q4

REPORT INFORMATION
  Report Type: 
  Country: None (occurrence: None)
  Receive Date: 20101112
  Receipt Date: 20101105
  Transmission Date: 20110411
  Serious: Yes (Hospitalization)
  Sender: FDA-Public Use
  Company Number: FR-KINGPHARMUSA00001-K201001365

PATIENT
  Age: 90 Year
  Sex: Female

DRUGS (12)
  1. ALTACE [Suspect]
     Indication: HYPERTENSION
     Dosage: 1.25 MG, QD
     Route: 048
     Dates: start: 20100113, end: 20100825
  2. EXELON [Suspect]
  3. MEMANTINE HCL [Concomitant]
  4. BUSPAR [Concomitant]
  5. KARDEGIC [Concomitant]
  6. EFFEXOR [Concomitant]
  7. OROCAL [Concomitant]
  8. SERC [Concomitant]
  9. PRAVASTATIN [Concomitant]
  10. LAMALINE [Concomitant]
  11. NULYTELY [Concomitant]
  12. STRONTIUM RANELATE [Concomitant]

REACTIONS (2)
  - FALL [None]
  - ORTHOSTATIC HYPOTENSION [None]
